FAERS Safety Report 10651364 (Version 2)
Quarter: 2014Q4

REPORT INFORMATION
  Report Type: Report from Study
  Country: JP (occurrence: JP)
  Receive Date: 20141215
  Receipt Date: 20141215
  Transmission Date: 20150529
  Serious: Yes (Other)
  Sender: FDA-Public Use
  Company Number: PHHY2014JP092359

PATIENT
  Age: 40 Year
  Sex: Male

DRUGS (17)
  1. CLOZARIL [Suspect]
     Active Substance: CLOZAPINE
     Dosage: 25 MG, QD
     Route: 048
     Dates: start: 20130124, end: 20130126
  2. CLOZARIL [Suspect]
     Active Substance: CLOZAPINE
     Dosage: 125 MG, QD
     Route: 048
     Dates: start: 20130203, end: 20130205
  3. CLOZARIL [Suspect]
     Active Substance: CLOZAPINE
     Dosage: 75 MG, QD
     Route: 048
     Dates: start: 20130130, end: 20130131
  4. CLOZARIL [Suspect]
     Active Substance: CLOZAPINE
     Dosage: 175 MG, QD
     Route: 048
     Dates: start: 20130209, end: 20130211
  5. NITRAZEPAM [Concomitant]
     Active Substance: NITRAZEPAM
     Indication: INSOMNIA
     Dosage: 15 MG, UNK
     Route: 048
     Dates: start: 20130126
  6. CLOZARIL [Suspect]
     Active Substance: CLOZAPINE
     Dosage: 300 MG, QD
     Route: 048
     Dates: start: 20130814
  7. CLOZARIL [Suspect]
     Active Substance: CLOZAPINE
     Indication: SCHIZOPHRENIA, DISORGANISED TYPE
     Dosage: 12.5 MG, QD
     Route: 048
     Dates: start: 20130123, end: 20130123
  8. CLOZARIL [Suspect]
     Active Substance: CLOZAPINE
     Dosage: 100 MG, QD
     Route: 048
     Dates: start: 20130201, end: 20130202
  9. CLOZARIL [Suspect]
     Active Substance: CLOZAPINE
     Dosage: 350 MG, QD
     Route: 048
     Dates: start: 20130517, end: 20130620
  10. CLOZARIL [Suspect]
     Active Substance: CLOZAPINE
     Dosage: 50 MG, QD
     Route: 048
     Dates: start: 20130127, end: 20130129
  11. CLOZARIL [Suspect]
     Active Substance: CLOZAPINE
     Dosage: 150 MG, QD
     Route: 048
     Dates: start: 20130206, end: 20130208
  12. CLOZARIL [Suspect]
     Active Substance: CLOZAPINE
     Dosage: 200 MG, QD
     Route: 048
     Dates: start: 20130212, end: 20130326
  13. CLOZARIL [Suspect]
     Active Substance: CLOZAPINE
     Dosage: 250 MG, QD
     Route: 048
     Dates: start: 20130327, end: 20130507
  14. CLOZARIL [Suspect]
     Active Substance: CLOZAPINE
     Dosage: 300 MG, QD
     Route: 048
     Dates: start: 20130508, end: 20130516
  15. BENZALIN [Suspect]
     Active Substance: NITRAZEPAM
     Indication: INSOMNIA
     Dosage: 15 MG, QD
     Route: 048
     Dates: start: 20130424, end: 20130702
  16. CLOZARIL [Suspect]
     Active Substance: CLOZAPINE
     Dosage: 400 MG, DAILY
     Route: 048
     Dates: start: 20130621, end: 20130813
  17. BENZALIN [Suspect]
     Active Substance: NITRAZEPAM
     Dosage: 10 MG, QD
     Route: 048
     Dates: start: 20130703

REACTIONS (4)
  - Tachycardia [Not Recovered/Not Resolved]
  - Chest pain [Unknown]
  - Dry mouth [Unknown]
  - Lung abscess [Recovered/Resolved]

NARRATIVE: CASE EVENT DATE: 20130813
